FAERS Safety Report 15397931 (Version 4)
Quarter: 2018Q4

REPORT INFORMATION
  Report Type: Report from Study
  Country: US (occurrence: US)
  Receive Date: 20180918
  Receipt Date: 20181008
  Transmission Date: 20190204
  Serious: No
  Sender: FDA-Public Use
  Company Number: US-ALEXION PHARMACEUTICALS INC.-A201812212

PATIENT
  Sex: Male

DRUGS (1)
  1. SOLIRIS [Suspect]
     Active Substance: ECULIZUMAB
     Indication: PRODUCT USED FOR UNKNOWN INDICATION
     Dosage: UNK, QW
     Route: 065
     Dates: end: 20181002

REACTIONS (3)
  - Fatigue [Recovering/Resolving]
  - Arthralgia [Recovering/Resolving]
  - Somnolence [Recovering/Resolving]
